FAERS Safety Report 8455267-X (Version None)
Quarter: 2012Q2

REPORT INFORMATION
  Report Type: 
  Country: None (occurrence: None)
  Receive Date: 20120621
  Receipt Date: 20120612
  Transmission Date: 20120825
  Serious: Yes (Other)
  Sender: FDA-Public Use
  Company Number: ES-NOVOPROD-353747

PATIENT
  Age: 73 Year
  Sex: Male

DRUGS (1)
  1. LEVEMIR [Suspect]
     Indication: DIABETES MELLITUS
     Dosage: 36 U, QD
     Route: 058
     Dates: start: 20080101, end: 20120101

REACTIONS (3)
  - HYPOTENSION [None]
  - RASH MACULAR [None]
  - PRURITUS GENERALISED [None]
